FAERS Safety Report 7178830-5 (Version None)
Quarter: 2010Q4

REPORT INFORMATION
  Report Type: 
  Country: None (occurrence: None)
  Receive Date: 20101221
  Receipt Date: 20101207
  Transmission Date: 20110411
  Serious: Yes (Other)
  Sender: FDA-Public Use
  Company Number: US-JNJFOC-20101206240

PATIENT

DRUGS (4)
  1. DOXORUBICIN HYDROCHLORIDE [Suspect]
     Indication: HODGKIN'S DISEASE
     Route: 042
  2. GEMCITABINE [Suspect]
     Indication: HODGKIN'S DISEASE
     Route: 042
  3. VINORELBINE [Suspect]
     Indication: HODGKIN'S DISEASE
     Route: 042
  4. MONOCLONAL ANTIBODY SGN-30 [Suspect]
     Indication: HODGKIN'S DISEASE
     Route: 065

REACTIONS (1)
  - LYMPHOPENIA [None]
